FAERS Safety Report 24685838 (Version 1)
Quarter: 2024Q4

REPORT INFORMATION
  Report Type: Report from Study
  Country: US (occurrence: US)
  Receive Date: 20241202
  Receipt Date: 20241202
  Transmission Date: 20250115
  Serious: No
  Sender: BLUEBIRD BIO
  Company Number: US-BLUEBIRD BIO-US-BBB-24-00052

PATIENT
  Age: 14 Year
  Sex: Female

DRUGS (1)
  1. ZYNTEGLO [Suspect]
     Active Substance: BETIBEGLOGENE AUTOTEMCEL
     Indication: Thalassaemia beta
     Dosage: UNK, SINGLE
     Route: 042
     Dates: start: 20240305

REACTIONS (1)
  - Platelet count decreased [Recovering/Resolving]
